FAERS Safety Report 11123932 (Version 2)
Quarter: 2015Q2

REPORT INFORMATION
  Report Type: Report from Study
  Country: ZA (occurrence: ZA)
  Receive Date: 20150520
  Receipt Date: 20150521
  Transmission Date: 20150821
  Serious: Yes (Death)
  Sender: FDA-Public Use
  Company Number: ZA-ROCHE-1550737

PATIENT
  Age: 50 Year
  Sex: Female
  Weight: 54 kg

DRUGS (18)
  1. SOLU-CORTEF [Concomitant]
     Active Substance: HYDROCORTISONE SODIUM SUCCINATE
     Dosage: X 1 DOSE
     Route: 042
     Dates: start: 20141219, end: 20141219
  2. LANSOPRAZOLE. [Concomitant]
     Active Substance: LANSOPRAZOLE
     Route: 048
     Dates: start: 20141223
  3. PHENERGAN [Concomitant]
     Active Substance: PROMETHAZINE HYDROCHLORIDE
     Route: 048
  4. CLOXACILLIN [Concomitant]
     Active Substance: CLOXACILLIN
     Dosage: 500MG FOUR TIMES PER DAY FOR 7 DAYS
     Route: 048
     Dates: start: 20141223
  5. RITUXIMAB [Suspect]
     Active Substance: RITUXIMAB
     Indication: NON-HODGKIN^S LYMPHOMA
     Dosage: 1 DOSE?LAST DOSE PRIOR TO EVENT: 19/DEC/2014
     Route: 042
     Dates: start: 20141219, end: 20141219
  6. PANADO [Concomitant]
     Active Substance: ACETAMINOPHEN
     Dosage: 2 TABLETS 6HOURLY X 1 DAY (24 HOURS)
     Route: 048
     Dates: start: 20141219
  7. ENALAPRIL [Concomitant]
     Active Substance: ENALAPRIL
     Route: 048
     Dates: start: 20141223
  8. HYDROCHLOROTHIAZIDE. [Concomitant]
     Active Substance: HYDROCHLOROTHIAZIDE
     Route: 048
     Dates: start: 20141223
  9. BACTROBAN [Concomitant]
     Active Substance: MUPIROCIN\MUPIROCIN CALCIUM
     Dosage: APPLY TO LEFT AXILLARY WOUND
     Route: 065
     Dates: start: 20141223
  10. SPECTRAPAIN [Concomitant]
     Dosage: TWO TABLETS THREE TIMES PER DAY WHEN NECESSARY
     Route: 048
     Dates: start: 20141223
  11. VINCRISTINE [Suspect]
     Active Substance: VINCRISTINE
     Indication: NON-HODGKIN^S LYMPHOMA
     Dosage: X 1 DOSE?LAST DOSE PRIOR TO EVENT: 19-DEC-2014
     Route: 042
     Dates: start: 20141219, end: 20141219
  12. ALLOPURINOL. [Concomitant]
     Active Substance: ALLOPURINOL
     Route: 048
     Dates: start: 20141223
  13. CYCLOPHOSPHAMIDE. [Suspect]
     Active Substance: CYCLOPHOSPHAMIDE
     Indication: NON-HODGKIN^S LYMPHOMA
     Dosage: X 1 DOSE?LAST DOSE PRIOR TO EVENT: 19-DEC-2014
     Route: 042
     Dates: start: 20141219
  14. ADRIAMYCIN [Suspect]
     Active Substance: DOXORUBICIN HYDROCHLORIDE
     Indication: NON-HODGKIN^S LYMPHOMA
     Dosage: X 1 DOSE?LAST DOSE PRIOR TO EVENT: 19/DEC/2014
     Route: 042
     Dates: start: 20141219, end: 20141219
  15. PREDNISONE. [Suspect]
     Active Substance: PREDNISONE
     Indication: NON-HODGKIN^S LYMPHOMA
     Dosage: 60MG ONCE DAILY FOR 7 DAYS
     Route: 048
     Dates: start: 20141219
  16. ZOFRAN [Concomitant]
     Active Substance: ONDANSETRON HYDROCHLORIDE
     Dosage: X 1 DOSE
     Route: 042
     Dates: start: 20141219
  17. ETOPOSIDE. [Suspect]
     Active Substance: ETOPOSIDE
     Indication: NON-HODGKIN^S LYMPHOMA
     Dosage: LAST DOSE PRIOR TO EVENT: 19-DEC-2014?X 1 DOSE
     Route: 042
     Dates: start: 20141219, end: 20141219
  18. AUGMENTIN [Concomitant]
     Active Substance: AMOXICILLIN\CLAVULANATE POTASSIUM
     Route: 048
     Dates: start: 20141223

REACTIONS (4)
  - General physical health deterioration [Fatal]
  - Terminal state [Fatal]
  - Asthenia [Fatal]
  - Decreased appetite [Fatal]

NARRATIVE: CASE EVENT DATE: 20141226
